FAERS Safety Report 9182159 (Version 1)
Quarter: 2013Q1

REPORT INFORMATION
  Report Type: Spontaneous
  Country: US (occurrence: None)
  Receive Date: 20130321
  Receipt Date: 20130321
  Transmission Date: 20140127
  Serious: Yes (Hospitalization, Disabling, Other)
  Sender: FDA-Public Use
  Company Number: None

PATIENT
  Age: 71 Year
  Sex: Female
  Weight: 70.76 kg

DRUGS (4)
  1. BONIVA [Suspect]
     Indication: BONE LOSS
     Dosage: TAKE AS DIRECTED
     Dates: start: 20070218, end: 20110324
  2. INDERAL [Concomitant]
  3. AVAPRO [Concomitant]
  4. GLUCOSOMINE [Concomitant]

REACTIONS (2)
  - Femur fracture [None]
  - Stress fracture [None]
